FAERS Safety Report 9458592 (Version 3)
Quarter: 2013Q4

REPORT INFORMATION
  Report Type: Report from Study
  Country: US (occurrence: US)
  Receive Date: 20130814
  Receipt Date: 20131202
  Transmission Date: 20140711
  Serious: Yes (Other)
  Sender: FDA-Public Use
  Company Number: US-BAYER-2013-097784

PATIENT
  Age: 67 Year
  Sex: Female

DRUGS (2)
  1. NEXAVAR [Suspect]
     Indication: THYROID CANCER
     Dosage: 400 MG, BID
     Route: 048
     Dates: start: 20130805, end: 2013
  2. TOPROL [Concomitant]
     Indication: HEART RATE INCREASED
     Dosage: UNK

REACTIONS (7)
  - Mental impairment [None]
  - Headache [None]
  - Off label use [None]
  - Blood pressure increased [Recovering/Resolving]
  - Atrial fibrillation [None]
  - Infarction [None]
  - Cerebrovascular accident [None]
